FAERS Safety Report 5368000-5 (Version None)
Quarter: 2007Q2

REPORT INFORMATION
  Report Type: 
  Country: None (occurrence: None)
  Receive Date: 20070622
  Receipt Date: 20070611
  Transmission Date: 20071010
  Serious: Yes (Other)
  Sender: FDA-Public Use
  Company Number: US-PFIZER INC-2007048153

PATIENT
  Sex: Male
  Weight: 125 kg

DRUGS (5)
  1. VIAGRA [Suspect]
     Indication: ERECTILE DYSFUNCTION
  2. ZIAC [Concomitant]
  3. LANTUS [Concomitant]
  4. HUMALOG [Concomitant]
  5. LORTAB [Concomitant]

REACTIONS (4)
  - BLINDNESS [None]
  - PAPILLOEDEMA [None]
  - VISUAL DISTURBANCE [None]
  - VISUAL FIELD DEFECT [None]
